FAERS Safety Report 8607197 (Version 2)
Quarter: 2013Q4

REPORT INFORMATION
  Report Type: Spontaneous
  Country: US (occurrence: US)
  Receive Date: 20120611
  Receipt Date: 20131011
  Transmission Date: 20140711
  Serious: Yes (Disabling)
  Sender: FDA-Public Use
  Company Number: US-ASTRAZENECA-2012SE36279

PATIENT
  Age: 52 Year
  Sex: Female
  Weight: 68 kg

DRUGS (14)
  1. NEXIUM [Suspect]
     Route: 048
  2. NEXIUM [Suspect]
     Route: 048
     Dates: start: 20120601
  3. TUMS [Concomitant]
     Dosage: CHEW 2 DAILY
  4. ROLAIDS [Concomitant]
     Dosage: CHEW 2-3 EACH MORNING
  5. CARISOPRODOL [Concomitant]
     Dates: start: 20120601
  6. CLONAZEPAM [Concomitant]
     Dates: start: 20120601
  7. CRESTOR [Concomitant]
     Dates: start: 20120701
  8. DICYCLOMINE [Concomitant]
     Dates: start: 20120801
  9. HYDROCODONE/APAP [Concomitant]
     Dosage: 7.5-500/15 ML
     Dates: start: 20120601
  10. LEVOTHYROXINE [Concomitant]
     Dates: start: 20120625
  11. LISINOPRIL [Concomitant]
     Dates: start: 20120529
  12. ONDANSETRON [Concomitant]
     Dates: start: 20120629
  13. PANTOPRAZOLE [Concomitant]
     Dates: start: 20121201
  14. VITAMIN D 2 [Concomitant]
     Dates: start: 20121001

REACTIONS (6)
  - Ankle fracture [Unknown]
  - Osteoporosis [Unknown]
  - Fall [Unknown]
  - Multiple fractures [Unknown]
  - Arthritis [Unknown]
  - Arthropathy [Unknown]
